FAERS Safety Report 5607963-7 (Version None)
Quarter: 2008Q1

REPORT INFORMATION
  Report Type: 
  Country: None (occurrence: None)
  Receive Date: 20080130
  Receipt Date: 20080121
  Transmission Date: 20080703
  Serious: Yes (Death, Hospitalization)
  Sender: FDA-Public Use
  Company Number: A0695678A

PATIENT
  Age: 86 Year
  Sex: Male
  Weight: 59.5 kg

DRUGS (3)
  1. ROSIGLITAZONE [Suspect]
     Dosage: 2MG PER DAY
     Route: 048
     Dates: start: 20070719
  2. ARICEPT [Concomitant]
     Route: 048
     Dates: start: 20010101
  3. MIDAZOLAM HCL [Concomitant]
     Indication: SEDATION
     Dosage: 1MG AS REQUIRED
     Route: 042
     Dates: start: 20071101, end: 20071120

REACTIONS (3)
  - BRONCHOPNEUMONIA [None]
  - FALL [None]
  - SPINAL COMPRESSION FRACTURE [None]
